FAERS Safety Report 8012708-X (Version None)
Quarter: 2011Q4

REPORT INFORMATION
  Report Type: 
  Country: None (occurrence: None)
  Receive Date: 20111229
  Receipt Date: 20110118
  Transmission Date: 20120403
  Serious: No
  Sender: FDA-Public Use
  Company Number: US-MYLANLABS-2010S1022258

PATIENT
  Sex: Female
  Weight: 127.01 kg

DRUGS (17)
  1. SYMBICORT [Concomitant]
     Indication: RESPIRATORY DISORDER
     Dosage: 160/4.5
  2. TRAMADOL HYDROCHLORIDE [Suspect]
     Route: 048
     Dates: start: 20060716
  3. LYRICA [Concomitant]
     Dosage: 2-25MG
  4. FLEXERIL [Concomitant]
     Dosage: BID PRN
     Dates: start: 20060711
  5. CITALOPRAM HYDROBROMIDE [Suspect]
     Indication: DEPRESSION
     Route: 048
     Dates: start: 20071017, end: 20110105
  6. NUVIGIL [Concomitant]
     Dates: start: 20091211
  7. MILNACIPRAN [Concomitant]
     Dates: start: 20101129
  8. PROVENTIL [Concomitant]
  9. PREMARIN [Concomitant]
     Dates: start: 20060712
  10. TOPROL-XL [Concomitant]
     Dates: start: 20060701
  11. FENOFIBRATE [Concomitant]
     Dates: start: 20060701
  12. FLONASE [Concomitant]
     Indication: RESPIRATORY DISORDER
  13. LORATADINE [Concomitant]
     Dates: start: 20081201
  14. METOFORMIN [Concomitant]
     Indication: DIABETES MELLITUS
  15. NUVIGIL [Concomitant]
     Dates: start: 20091211
  16. DOXEPIN HYDROCHLORIDE [Suspect]
     Route: 048
     Dates: start: 20060711
  17. BUSPIRONE HCL [Concomitant]
     Dates: start: 20060711

REACTIONS (2)
  - EXTRAOCULAR MUSCLE PARESIS [None]
  - HYPERHIDROSIS [None]
